FAERS Safety Report 21586909 (Version 1)
Quarter: 2022Q4

REPORT INFORMATION
  Report Type: Report from Study
  Country: US (occurrence: US)
  Receive Date: 20221113
  Receipt Date: 20221113
  Transmission Date: 20230112
  Serious: Yes (Hospitalization, Other)
  Sender: FDA-Public Use
  Company Number: US-BRISTOL-MYERS SQUIBB COMPANY-2022-135840

PATIENT
  Age: 23 Year
  Sex: Female
  Weight: 42.9 kg

DRUGS (1)
  1. NIVOLUMAB [Suspect]
     Active Substance: NIVOLUMAB
     Indication: Hodgkin^s disease
     Dosage: LAST DOSE 28-OCT-2020  ON DAYS 1 AND 15 [ANDLT;18 YEARS: 3 MG/KG (UP TO 240 MG) IV ON DAYS 1 AND 15]
     Route: 042
     Dates: start: 20201028, end: 20201028

REACTIONS (2)
  - Sepsis [Not Recovered/Not Resolved]
  - Vascular access site infection [Unknown]

NARRATIVE: CASE EVENT DATE: 20201111
